FAERS Safety Report 23308976 (Version 1)
Quarter: 2023Q4

REPORT INFORMATION
  Report Type: Spontaneous
  Country: US (occurrence: US)
  Receive Date: 20231218
  Receipt Date: 20231218
  Transmission Date: 20240109
  Serious: No
  Sender: FDA-Public Use
  Company Number: US-GLAXOSMITHKLINE-US2023AMR175450

PATIENT
  Sex: Female
  Weight: 61.6 kg

DRUGS (2)
  1. ZEJULA [Suspect]
     Active Substance: NIRAPARIB
     Indication: Fallopian tube cancer
     Dosage: 300 MG, QD (AT BEDTIME)
     Dates: start: 20231130
  2. ZEJULA [Suspect]
     Active Substance: NIRAPARIB
     Dosage: 200 UNK
     Dates: start: 20231206

REACTIONS (2)
  - Headache [Not Recovered/Not Resolved]
  - Nausea [Recovered/Resolved]

NARRATIVE: CASE EVENT DATE: 20231206
